FAERS Safety Report 8369295-6 (Version None)
Quarter: 2012Q2

REPORT INFORMATION
  Report Type: 
  Country: None (occurrence: None)
  Receive Date: 20120518
  Receipt Date: 20120509
  Transmission Date: 20120825
  Serious: Yes (Other)
  Sender: FDA-Public Use
  Company Number: PHHY2011ZA84624

PATIENT
  Sex: Female

DRUGS (8)
  1. GALVUS [Suspect]
     Dosage: 50 MG, BID
  2. LEVEMIR [Concomitant]
     Dosage: UNK UKN, UNK
  3. GALVUS [Suspect]
     Dosage: UNK UKN, UNK
  4. LEVOTHYROXINE SODIUM [Concomitant]
     Dosage: 0.5 MG, PER DAY
  5. METFORMIN HCL [Concomitant]
     Dosage: UNK UKN, UNK
  6. EXFORGE [Suspect]
     Dosage: UNK UKN, UNK
     Dates: end: 20100101
  7. WATER [Concomitant]
     Dosage: UNK UKN, UNK
  8. AMLODIPINE BESYLATE [Concomitant]

REACTIONS (2)
  - CHEST DISCOMFORT [None]
  - ASTHMA [None]
